FAERS Safety Report 8380672-X (Version None)
Quarter: 2012Q2

REPORT INFORMATION
  Report Type: 
  Country: None (occurrence: None)
  Receive Date: 20120523
  Receipt Date: 20120509
  Transmission Date: 20120825
  Serious: Yes (Hospitalization, Other)
  Sender: FDA-Public Use
  Company Number: US-ROCHE-784299

PATIENT
  Sex: Male
  Weight: 90.8 kg

DRUGS (2)
  1. ACCUTANE [Suspect]
     Route: 065
     Dates: start: 19950801, end: 19960101
  2. ACCUTANE [Suspect]
     Indication: PRODUCT USED FOR UNKNOWN INDICATION
     Route: 065
     Dates: start: 19860101, end: 19870101

REACTIONS (8)
  - COLITIS ULCERATIVE [None]
  - INFLAMMATORY BOWEL DISEASE [None]
  - CROHN'S DISEASE [None]
  - BLOOD TRIGLYCERIDES INCREASED [None]
  - STRESS [None]
  - SMALL INTESTINAL OBSTRUCTION [None]
  - DEPRESSION [None]
  - IRRITABLE BOWEL SYNDROME [None]
